FAERS Safety Report 23362583 (Version 20)
Quarter: 2025Q3

REPORT INFORMATION
  Report Type: Report from Study
  Country: CO (occurrence: CO)
  Receive Date: 20240103
  Receipt Date: 20250926
  Transmission Date: 20251020
  Serious: Yes (Other)
  Sender: TAKEDA
  Company Number: CO-TAKEDA-2023TUS110172

PATIENT
  Age: 43 Year
  Sex: Male
  Weight: 55 kg

DRUGS (2)
  1. VEDOLIZUMAB [Suspect]
     Active Substance: VEDOLIZUMAB
     Indication: Colitis ulcerative
  2. VEDOLIZUMAB [Suspect]
     Active Substance: VEDOLIZUMAB
     Dosage: 300 MILLIGRAM, Q4WEEKS

REACTIONS (18)
  - Haematochezia [Unknown]
  - Tachycardia [Unknown]
  - Somnolence [Recovered/Resolved]
  - Frequent bowel movements [Unknown]
  - Drug ineffective [Unknown]
  - Weight increased [Unknown]
  - Body height increased [Unknown]
  - Treatment noncompliance [Unknown]
  - Product distribution issue [Unknown]
  - Nervousness [Recovered/Resolved]
  - Tinnitus [Recovered/Resolved]
  - Viral infection [Unknown]
  - Discouragement [Unknown]
  - Influenza like illness [Unknown]
  - Impaired work ability [Unknown]
  - Dizziness [Recovered/Resolved]
  - Nausea [Recovered/Resolved]
  - Influenza [Unknown]

NARRATIVE: CASE EVENT DATE: 20231030
